FAERS Safety Report 8715337 (Version 2)
Quarter: 2012Q4

REPORT INFORMATION
  Report Type: 
  Country: US (occurrence: US)
  Receive Date: 20120809
  Receipt Date: 20121012
  Transmission Date: 20130627
  Serious: Yes (Life-Threatening, Hospitalization, Other)
  Sender: FDA-Public Use
  Company Number: US-GLAXOSMITHKLINE-A0988323A

PATIENT
  Age: 57 Year
  Sex: Female
  Weight: 68.6 kg

DRUGS (3)
  1. FLOVENT [Suspect]
     Indication: ASTHMA
     Dosage: 2PUFF Per day
     Route: 055
     Dates: start: 1992
  2. SYNTHROID [Concomitant]
  3. APRISO [Concomitant]

REACTIONS (5)
  - Myocardial infarction [Recovering/Resolving]
  - Coronary artery occlusion [Recovering/Resolving]
  - Thrombosis [Recovering/Resolving]
  - Arteriosclerosis [Recovering/Resolving]
  - Blood pressure decreased [Recovering/Resolving]
